FAERS Safety Report 4999719-3 (Version None)
Quarter: 2006Q2

REPORT INFORMATION
  Report Type: 
  Country: None (occurrence: None)
  Receive Date: 20060510
  Receipt Date: 20060510
  Transmission Date: 20061013
  Serious: Yes (Hospitalization)
  Sender: FDA-Public Use
  Company Number: None

PATIENT
  Age: 75 Year
  Sex: Female

DRUGS (13)
  1. STALEVO 150 [Suspect]
     Indication: PARKINSON'S DISEASE
     Dosage: 150 EVERY 2 HOURS PO
     Route: 048
  2. OLANZAPINE [Concomitant]
  3. DONEPAZIL [Concomitant]
  4. PROVIGIL [Concomitant]
  5. ATENOLOL [Concomitant]
  6. GABAPENTIN [Concomitant]
  7. ASPIRIN [Concomitant]
  8. MECLIXINE [Concomitant]
  9. PATANOL [Concomitant]
  10. MELATONIN [Concomitant]
  11. MULTI-VITAMIN [Concomitant]
  12. CELECOXIB [Concomitant]
  13. TRIAMTERENE AND HYDROCHLOROTHIAZIDE [Concomitant]

REACTIONS (3)
  - CONDITION AGGRAVATED [None]
  - HALLUCINATION, VISUAL [None]
  - ORAL INTAKE REDUCED [None]
